FAERS Safety Report 19839858 (Version 4)
Quarter: 2021Q4

REPORT INFORMATION
  Report Type: Spontaneous
  Country: JP (occurrence: JP)
  Receive Date: 20210916
  Receipt Date: 20211008
  Transmission Date: 20220303
  Serious: Yes (Life-Threatening, Hospitalization, Disabling)
  Sender: FDA-Public Use
  Company Number: 2021A682670

PATIENT
  Age: 850 Month
  Sex: Female
  Weight: 44 kg

DRUGS (5)
  1. TAGRISSO [Suspect]
     Active Substance: OSIMERTINIB
     Indication: Non-small cell lung cancer
     Route: 048
     Dates: start: 20210310, end: 20210721
  2. MAXIPIME [Suspect]
     Active Substance: CEFEPIME HYDROCHLORIDE
     Indication: Pneumonia
     Dosage: UNKNOWN
     Route: 065
  3. UNSPECIFIED INGREDIENT [Suspect]
     Active Substance: UNSPECIFIED INGREDIENT
     Dosage: NUMBER OF SEPARATE DOSAGES UNKNOWN
     Route: 065
     Dates: start: 20210726, end: 20210728
  4. HUMAN IMMUNOGLOBULIN G [Suspect]
     Active Substance: HUMAN IMMUNOGLOBULIN G
     Dosage: DOSE UNKNOWN
     Route: 065
     Dates: start: 20210730, end: 20210803
  5. DEPAKENE [Concomitant]
     Active Substance: VALPROIC ACID
     Indication: Migraine
     Route: 048

REACTIONS (6)
  - Respiratory tract infection [Recovered/Resolved]
  - Hepatic function abnormal [Recovered/Resolved]
  - Pneumonia [Recovering/Resolving]
  - Drug eruption [Recovering/Resolving]
  - Mouth ulceration [Unknown]
  - Dermatitis acneiform [Recovering/Resolving]

NARRATIVE: CASE EVENT DATE: 20210301
